FAERS Safety Report 8434122-5 (Version None)
Quarter: 2012Q2

REPORT INFORMATION
  Report Type: 
  Country: None (occurrence: None)
  Receive Date: 20120613
  Receipt Date: 20120531
  Transmission Date: 20120825
  Serious: Yes (Hospitalization, Other)
  Sender: FDA-Public Use
  Company Number: US-ACTELION-A-NJ2012-62652

PATIENT

DRUGS (23)
  1. ADCIRCA [Concomitant]
  2. ATIVAN [Concomitant]
  3. ALLOPURINOL [Concomitant]
  4. DEMADEX [Concomitant]
  5. HUMULIN R [Concomitant]
  6. COREG [Concomitant]
  7. LISINOPRIL [Concomitant]
  8. OMEPRAZOLE [Concomitant]
  9. LORTAB [Concomitant]
  10. TRACLEER [Suspect]
     Indication: PULMONARY ARTERIAL HYPERTENSION
     Dosage: 125 MG, BID
     Route: 048
     Dates: start: 20100409
  11. SYNTHROID [Concomitant]
  12. LOVAZA [Concomitant]
  13. FLUTICASONE FUROATE [Concomitant]
  14. COLACE [Concomitant]
  15. TRICOR [Concomitant]
  16. PREMARIN [Concomitant]
  17. ZANAFLEX [Concomitant]
  18. SPIRIVA [Concomitant]
  19. CELEXA [Concomitant]
  20. POLY-IRON [Concomitant]
  21. NEURONTIN [Concomitant]
  22. ALBUTEROL [Concomitant]
  23. VITAMIN D [Concomitant]

REACTIONS (11)
  - HAEMORRHOIDS [None]
  - CHOLECYSTITIS [None]
  - HAEMORRHOID OPERATION [None]
  - GASTROINTESTINAL HAEMORRHAGE [None]
  - IRON DEFICIENCY ANAEMIA [None]
  - PACKED RED BLOOD CELL TRANSFUSION [None]
  - CHOLECYSTECTOMY [None]
  - HYPOGLYCAEMIA [None]
  - HYPOTENSION [None]
  - RENAL FAILURE CHRONIC [None]
  - DYSPNOEA [None]
